FAERS Safety Report 16711632 (Version 2)
Quarter: 2019Q3

REPORT INFORMATION
  Report Type: Report from Study
  Country: US (occurrence: US)
  Receive Date: 20190816
  Receipt Date: 20190903
  Transmission Date: 20191004
  Serious: No
  Sender: FDA-Public Use
  Company Number: US-SA-2019SA222857

PATIENT
  Age: 73 Year
  Sex: Male

DRUGS (2)
  1. ALIROCUMAB [Suspect]
     Active Substance: ALIROCUMAB
     Indication: BLOOD CHOLESTEROL INCREASED
     Dosage: UNK UNK, QOW
     Dates: start: 20190802
  2. ALIROCUMAB [Suspect]
     Active Substance: ALIROCUMAB
     Indication: BLOOD CHOLESTEROL
     Dosage: 75 MG
     Route: 058
     Dates: start: 20190726

REACTIONS (9)
  - Haematoma [Not Recovered/Not Resolved]
  - Feeling abnormal [Not Recovered/Not Resolved]
  - Dizziness [Not Recovered/Not Resolved]
  - Blood pressure fluctuation [Unknown]
  - Lethargy [Recovering/Resolving]
  - Dyspnoea [Not Recovered/Not Resolved]
  - Nausea [Not Recovered/Not Resolved]
  - Asthenia [Not Recovered/Not Resolved]
  - Rhinorrhoea [Not Recovered/Not Resolved]

NARRATIVE: CASE EVENT DATE: 2019
